FAERS Safety Report 8962809 (Version 2)
Quarter: 2013Q1

REPORT INFORMATION
  Report Type: Spontaneous
  Country: CA (occurrence: CA)
  Receive Date: 20121214
  Receipt Date: 20130131
  Transmission Date: 20140127
  Serious: Yes (Other)
  Sender: FDA-Public Use
  Company Number: CA-ABBOTT-12P-028-1021014-00

PATIENT
  Age: 30 Year
  Sex: Male

DRUGS (1)
  1. MAVIK [Suspect]
     Indication: HYPERTENSION

REACTIONS (4)
  - Nervousness [Unknown]
  - Chest pain [Unknown]
  - Dizziness [Recovered/Resolved]
  - Feeling abnormal [Unknown]
